FAERS Safety Report 4729445-7 (Version None)
Quarter: 2005Q3

REPORT INFORMATION
  Report Type: 
  Country: None (occurrence: None)
  Receive Date: 20050728
  Receipt Date: 20050722
  Transmission Date: 20060218
  Serious: Yes (Other)
  Sender: FDA-Public Use
  Company Number: US015674

PATIENT
  Sex: Female

DRUGS (2)
  1. GABITRIL [Suspect]
     Indication: ANXIETY
     Dosage: 6 MG QHS ORAL
     Route: 048
     Dates: start: 20050301
  2. GABITRIL [Suspect]
     Indication: INSOMNIA
     Dosage: 6 MG QHS ORAL
     Route: 048
     Dates: start: 20050301

REACTIONS (1)
  - CONVULSION [None]
